FAERS Safety Report 4849313-X (Version None)
Quarter: 2005Q4

REPORT INFORMATION
  Report Type: 
  Country: None (occurrence: None)
  Receive Date: 20051207
  Receipt Date: 20051125
  Transmission Date: 20060501
  Serious: Yes (Other)
  Sender: FDA-Public Use
  Company Number: 2005161752

PATIENT
  Age: 20 Year
  Sex: Female
  Weight: 61.2356 kg

DRUGS (2)
  1. ZYRTEC-D 12 HOUR [Suspect]
     Indication: MULTIPLE ALLERGIES
     Dosage: AS NECESSARY
  2. ALESSE [Suspect]
     Indication: CONTRACEPTION

REACTIONS (6)
  - BACK INJURY [None]
  - DIZZINESS [None]
  - DRUG INTERACTION [None]
  - FALL [None]
  - NO REACTION ON PREVIOUS EXPOSURE TO DRUG [None]
  - SYNCOPE [None]
